FAERS Safety Report 4371873-6 (Version None)
Quarter: 2004Q2

REPORT INFORMATION
  Report Type: 
  Country: None (occurrence: None)
  Receive Date: 20040602
  Receipt Date: 20040518
  Transmission Date: 20050107
  Serious: Yes (Hospitalization)
  Sender: FDA-Public Use
  Company Number: 2004-BP-03896BP

PATIENT
  Age: 12 Year
  Sex: Male

DRUGS (4)
  1. CATAPRES-TTS-3 [Suspect]
     Indication: TIC
     Dosage: SEE IMAGE
     Route: 061
     Dates: start: 20040101, end: 20040201
  2. CATAPRES-TTS-3 [Suspect]
     Indication: TIC
     Dosage: SEE IMAGE
     Route: 061
     Dates: start: 20040218, end: 20040503
  3. SINGULAIR [Concomitant]
  4. ALLEGRA [Concomitant]

REACTIONS (6)
  - BLOOD PRESSURE DECREASED [None]
  - FATIGUE [None]
  - FEELING ABNORMAL [None]
  - HEART RATE DECREASED [None]
  - LETHARGY [None]
  - MEDICATION ERROR [None]
